FAERS Safety Report 24695050 (Version 1)
Quarter: 2024Q4

REPORT INFORMATION
  Report Type: Spontaneous
  Country: US (occurrence: None)
  Receive Date: 20241204
  Receipt Date: 20241204
  Transmission Date: 20250115
  Serious: Yes (Hospitalization)
  Sender: Public
  Company Number: None

PATIENT
  Sex: Male

DRUGS (1)
  1. AVSOLA [Suspect]
     Active Substance: INFLIXIMAB-AXXQ
     Dosage: OTHER FREQUENCY : EVERY 5 WEEKS;?
     Route: 042
     Dates: start: 202404

REACTIONS (2)
  - Intestinal obstruction [None]
  - Nonspecific reaction [None]
